FAERS Safety Report 10076774 (Version 1)
Quarter: 2014Q2

REPORT INFORMATION
  Report Type: Spontaneous
  Country: BR (occurrence: BR)
  Receive Date: 20140414
  Receipt Date: 20140414
  Transmission Date: 20141212
  Serious: Yes (Other)
  Sender: FDA-Public Use
  Company Number: BR-PFIZER INC-2014100804

PATIENT
  Age: 56 Year
  Sex: Female
  Weight: 53 kg

DRUGS (3)
  1. CELEBRA [Suspect]
     Indication: OSTEOARTHRITIS
     Dosage: 2 CAPSULES OF 200MG (400MG) DAILY
     Route: 048
     Dates: start: 2004
  2. CELEBRA [Suspect]
     Indication: BURSITIS
  3. CELEBRA [Suspect]
     Indication: INTERVERTEBRAL DISC PROTRUSION

REACTIONS (2)
  - Uterine disorder [Unknown]
  - Cardiac disorder [Unknown]
